FAERS Safety Report 18641183 (Version 7)
Quarter: 2022Q2

REPORT INFORMATION
  Report Type: Other
  Country: CA (occurrence: None)
  Receive Date: 20201221
  Receipt Date: 20220426
  Transmission Date: 20220721
  Serious: Yes (Hospitalization, Other)
  Sender: FDA-Public Use
  Company Number: CA-ROCHE-2734031

PATIENT
  Age: 19 Year
  Sex: Female

DRUGS (4)
  1. OCREVUS [Suspect]
     Active Substance: OCRELIZUMAB
     Indication: Relapsing-remitting multiple sclerosis
     Dosage: 300 MG AT DAY 0 AND 14, THEN 600 MG EVERY 6 MONTH?END DATE-13/APR/2022
     Route: 042
     Dates: start: 20191009
  2. RISPERIDONE [Concomitant]
     Active Substance: RISPERIDONE
  3. ALESSE 28 [Concomitant]
     Active Substance: ETHINYL ESTRADIOL\LEVONORGESTREL
  4. MELATONIN [Concomitant]
     Active Substance: MELATONIN

REACTIONS (9)
  - COVID-19 pneumonia [Recovering/Resolving]
  - Seizure [Recovered/Resolved]
  - Aspiration [Recovered/Resolved]
  - Haematemesis [Unknown]
  - Sleep disorder [Not Recovered/Not Resolved]
  - Mobility decreased [Not Recovered/Not Resolved]
  - Abnormal behaviour [Not Recovered/Not Resolved]
  - Musculoskeletal stiffness [Recovered/Resolved]
  - Communication disorder [Recovered/Resolved]

NARRATIVE: CASE EVENT DATE: 20201209
